FAERS Safety Report 5781738-0 (Version None)
Quarter: 2008Q2

REPORT INFORMATION
  Report Type: 
  Country: None (occurrence: None)
  Receive Date: 20080623
  Receipt Date: 20080616
  Transmission Date: 20081010
  Serious: Yes (Hospitalization)
  Sender: FDA-Public Use
  Company Number: US-AMGEN-US279622

PATIENT
  Sex: Female
  Weight: 48.6 kg

DRUGS (16)
  1. VECTIBIX [Suspect]
     Indication: COLORECTAL CANCER
     Route: 014
     Dates: start: 20080319, end: 20080505
  2. IRINOTECAN HCL [Concomitant]
     Dates: start: 20080319, end: 20080505
  3. AVASTIN [Concomitant]
     Dates: start: 20070530, end: 20080505
  4. COREG [Concomitant]
     Route: 065
     Dates: start: 20070522, end: 20080521
  5. LASIX [Concomitant]
     Route: 065
     Dates: start: 20070522, end: 20080521
  6. AMITRIPTYLINE HCL [Concomitant]
     Route: 065
     Dates: start: 20070522, end: 20080521
  7. ULTRACET [Concomitant]
     Route: 065
     Dates: start: 20070522, end: 20080521
  8. FERROUS GLUCONATE [Concomitant]
     Route: 065
     Dates: start: 20070522, end: 20080521
  9. ASPIRIN [Concomitant]
     Route: 065
     Dates: start: 20070522, end: 20080521
  10. MIRALAX [Concomitant]
     Route: 065
     Dates: start: 20070329, end: 20080521
  11. AMBIEN [Concomitant]
     Route: 065
     Dates: start: 20080317, end: 20080521
  12. ACIPHEX [Concomitant]
     Route: 065
     Dates: start: 20080417, end: 20080521
  13. ALOXI [Concomitant]
     Route: 065
     Dates: start: 20070530, end: 20080505
  14. DECADRON [Concomitant]
     Route: 065
     Dates: start: 20070530, end: 20080505
  15. ATIVAN [Concomitant]
     Dates: start: 20080417, end: 20080505
  16. FLUOROURACIL [Concomitant]
     Route: 041
     Dates: start: 20070530, end: 20080506

REACTIONS (2)
  - BLOOD CREATININE INCREASED [None]
  - RENAL FAILURE [None]
